FAERS Safety Report 4849341-4 (Version None)
Quarter: 2005Q4

REPORT INFORMATION
  Report Type: 
  Country: None (occurrence: None)
  Receive Date: 20051207
  Receipt Date: 20051128
  Transmission Date: 20060501
  Serious: Yes (Death)
  Sender: FDA-Public Use
  Company Number: 2005127617

PATIENT
  Age: 24 Year

DRUGS (4)
  1. SERTRALINE             (ISERTRALINE) [Suspect]
     Indication: ILL-DEFINED DISORDER
  2. DIAZEPAM [Suspect]
     Indication: ILL-DEFINED DISORDER
  3. TIAGABINE HCL [Suspect]
     Indication: ILL-DEFINED DISORDER
  4. ALL OTHER THERAPEUTIC PRODUCTS [Suspect]
     Indication: ILL-DEFINED DISORDER

REACTIONS (4)
  - CARDIAC ARREST [None]
  - COMPLETED SUICIDE [None]
  - INTENTIONAL DRUG MISUSE [None]
  - RESPIRATORY ARREST [None]
